FAERS Safety Report 13336026 (Version 1)
Quarter: 2017Q1

REPORT INFORMATION
  Report Type: Report from Study
  Country: DE (occurrence: DE)
  Receive Date: 20170315
  Receipt Date: 20170315
  Transmission Date: 20170428
  Serious: Yes (Death, Hospitalization, Other)
  Sender: FDA-Public Use
  Company Number: DE-BEH-2017078654

PATIENT
  Age: 76 Year
  Sex: Female
  Weight: 72 kg

DRUGS (11)
  1. PRIVIGEN [Suspect]
     Active Substance: HUMAN IMMUNOGLOBULIN G
     Dosage: 10 G, TOT; 100 ML; ROUTE: I.V. PUMP
     Route: 042
     Dates: start: 20161212
  2. DEKRISTOL [Concomitant]
     Active Substance: CHOLECALCIFEROL
  3. CALCIUM D3                         /00944201/ [Concomitant]
     Active Substance: CALCIUM CARBONATE\CHOLECALCIFEROL
  4. LORZAAR PLUS [Concomitant]
     Active Substance: HYDROCHLOROTHIAZIDE\LOSARTAN POTASSIUM
  5. RANIBETA [Concomitant]
  6. TRAMADOL. [Concomitant]
     Active Substance: TRAMADOL
  7. BIOMO-LIPON [Concomitant]
     Active Substance: THIOCTIC ACID
  8. PRIVIGEN [Suspect]
     Active Substance: HUMAN IMMUNOGLOBULIN G
     Indication: MYELODYSPLASTIC SYNDROME
     Dosage: 10 G, TOT
     Route: 065
     Dates: start: 20161121
  9. NOVAMINSULFON [Concomitant]
     Active Substance: METAMIZOLE
     Dosage: AS REQUIRED
     Route: 065
  10. EBRANTIL                           /00631801/ [Concomitant]
     Active Substance: URAPIDIL
  11. PREDNISONE. [Concomitant]
     Active Substance: PREDNISONE

REACTIONS (12)
  - Oesophageal candidiasis [Unknown]
  - Pulmonary congestion [Unknown]
  - Pneumonia [Fatal]
  - Dyspnoea [Fatal]
  - Cardiac arrest [Fatal]
  - Cough [Fatal]
  - General physical health deterioration [Unknown]
  - Circulatory collapse [Fatal]
  - Cardiac failure [Fatal]
  - Pyrexia [Fatal]
  - Rales [Fatal]
  - Nausea [Unknown]

NARRATIVE: CASE EVENT DATE: 201701
